FAERS Safety Report 8509886-2 (Version None)
Quarter: 2012Q3

REPORT INFORMATION
  Report Type: 
  Country: None (occurrence: None)
  Receive Date: 20120713
  Receipt Date: 20120712
  Transmission Date: 20120928
  Serious: Yes (Life-Threatening)
  Sender: FDA-Public Use
  Company Number: JP-B.I. PHARMACEUTICALS,INC./RIDGEFIELD-2012-BP-15456NB

PATIENT
  Age: 84 Year
  Sex: Female
  Weight: 41.8 kg

DRUGS (3)
  1. DIGOXIN [Concomitant]
     Route: 065
  2. PRADAXA [Suspect]
     Dosage: 220 MG
     Route: 048
     Dates: start: 20120620, end: 20120705
  3. ZOLPIDEM [Concomitant]
     Route: 065

REACTIONS (1)
  - HAEMORRHAGE INTRACRANIAL [None]
